FAERS Safety Report 21565069 (Version 1)
Quarter: 2022Q4

REPORT INFORMATION
  Report Type: Report from Study
  Country: FR (occurrence: None)
  Receive Date: 20221108
  Receipt Date: 20221108
  Transmission Date: 20230113
  Serious: Yes (Hospitalization)
  Sender: FDA-Public Use
  Company Number: FR-ROCHE-3210395

PATIENT
  Age: 58 Year
  Sex: Female
  Weight: 64 kg

DRUGS (3)
  1. VEMURAFENIB [Suspect]
     Active Substance: VEMURAFENIB
     Indication: Neoplasm malignant
     Dosage: DATE OF LAST ADMINISTRATION 16/OCT/2022
     Route: 048
     Dates: start: 20160705
  2. LIPIKAR BAUME AP+M [Concomitant]
  3. PAROXETINE MESYLATE [Concomitant]
     Active Substance: PAROXETINE MESYLATE

REACTIONS (3)
  - Cholecystectomy [Recovered/Resolved]
  - Cholelithiasis [Recovered/Resolved]
  - Biliary colic [Recovered/Resolved]
